FAERS Safety Report 15431305 (Version 2)
Quarter: 2018Q4

REPORT INFORMATION
  Report Type: Spontaneous
  Country: US (occurrence: US)
  Receive Date: 20180926
  Receipt Date: 20181024
  Transmission Date: 20190204
  Serious: No
  Sender: FDA-Public Use
  Company Number: US-SUNOVION-2018SUN003566

PATIENT
  Age: 58 Year
  Sex: Male
  Weight: 99.77 kg

DRUGS (3)
  1. LATUDA [Suspect]
     Active Substance: LURASIDONE HYDROCHLORIDE
     Indication: PARANOIA
     Dosage: 40 MG, UNK
     Route: 048
     Dates: end: 201809
  2. ATIVAN [Concomitant]
     Active Substance: LORAZEPAM
     Dosage: UNK
  3. LATUDA [Suspect]
     Active Substance: LURASIDONE HYDROCHLORIDE
     Indication: CEREBROVASCULAR ACCIDENT
     Dosage: 60 MG, UNK
     Route: 048
     Dates: start: 201809

REACTIONS (4)
  - Product dose omission [Recovered/Resolved]
  - Off label use [Recovered/Resolved]
  - Abnormal behaviour [Recovered/Resolved]
  - Paranoia [Recovered/Resolved]

NARRATIVE: CASE EVENT DATE: 20180903
